FAERS Safety Report 13252910 (Version 4)
Quarter: 2017Q1

REPORT INFORMATION
  Report Type: Spontaneous
  Country: JP (occurrence: JP)
  Receive Date: 20170220
  Receipt Date: 20170329
  Transmission Date: 20170428
  Serious: Yes (Death, Other)
  Sender: FDA-Public Use
  Company Number: PHJP2017JP003109

PATIENT
  Age: 94 Year
  Sex: Female
  Weight: 40.9 kg

DRUGS (6)
  1. MEMARY [Suspect]
     Active Substance: MEMANTINE HYDROCHLORIDE
     Dosage: 10 MG, QD
     Route: 048
     Dates: start: 20170105, end: 20170111
  2. MEMARY [Suspect]
     Active Substance: MEMANTINE HYDROCHLORIDE
     Dosage: 15 MG, QD
     Route: 048
     Dates: start: 20170112, end: 20170118
  3. EXELON PATCH [Suspect]
     Active Substance: RIVASTIGMINE
     Indication: DEMENTIA ALZHEIMER^S TYPE
     Dosage: 4.5 MG, QD
     Route: 062
     Dates: start: 20161208, end: 20161214
  4. EXELON PATCH [Suspect]
     Active Substance: RIVASTIGMINE
     Dosage: 0.95 MG, QD
     Route: 062
     Dates: start: 20161215, end: 20170127
  5. MEMARY [Suspect]
     Active Substance: MEMANTINE HYDROCHLORIDE
     Indication: DEMENTIA ALZHEIMER^S TYPE
     Dosage: 5 MG, QD
     Route: 048
     Dates: start: 20161229, end: 20170104
  6. MEMARY [Suspect]
     Active Substance: MEMANTINE HYDROCHLORIDE
     Dosage: 20 MG, QD
     Route: 048
     Dates: start: 20170119, end: 20170127

REACTIONS (6)
  - Drug prescribing error [Unknown]
  - Lymphocyte stimulation test positive [Unknown]
  - Platelet count decreased [Not Recovered/Not Resolved]
  - Pneumonia aspiration [Fatal]
  - Immune thrombocytopenic purpura [Not Recovered/Not Resolved]
  - Blood immunoglobulin G increased [Unknown]

NARRATIVE: CASE EVENT DATE: 20170105
